FAERS Safety Report 26208077 (Version 1)
Quarter: 2025Q4

REPORT INFORMATION
  Report Type: Spontaneous
  Country: US (occurrence: None)
  Receive Date: 20251224
  Receipt Date: 20251224
  Transmission Date: 20260119
  Serious: Yes (Hospitalization)
  Sender: FDA-CTU
  Company Number: None

PATIENT
  Sex: Male

DRUGS (5)
  1. OPSUMIT [Suspect]
     Active Substance: MACITENTAN
     Indication: Pulmonary arterial hypertension
     Dosage: 10 MG DAILY ORAL
     Route: 048
     Dates: start: 20230502
  2. REMODULIN [Suspect]
     Active Substance: TREPROSTINIL
  3. STERILE DILUENT FOR REMODULIN [Concomitant]
     Active Substance: WATER
  4. OPSUMIT [Concomitant]
     Active Substance: MACITENTAN
  5. REMODULIN EMGCY PREMX (BRG) [Concomitant]

REACTIONS (2)
  - Dyspnoea [None]
  - Ascites [None]
